FAERS Safety Report 8986553 (Version 1)
Quarter: 2012Q4

REPORT INFORMATION
  Report Type: 
  Country: US (occurrence: US)
  Receive Date: 20121226
  Receipt Date: 20121226
  Transmission Date: 20130627
  Serious: Yes (Death)
  Sender: FDA-Public Use
  Company Number: US-SANOFI-AVENTIS-2012SA091560

PATIENT
  Age: 25 Year
  Sex: Female
  Weight: 85.5 kg

DRUGS (12)
  1. AMBIEN [Suspect]
     Indication: ANXIETY
     Route: 048
  2. CONESTAT ALFA [Suspect]
     Indication: HEREDITARY ANGIOEDEMA
     Dosage: every 4 days Dose:1000 unit(s)
     Route: 042
     Dates: start: 20120720, end: 20121204
  3. DILAUDID [Suspect]
     Indication: PAIN
     Route: 048
  4. EPIPEN [Concomitant]
  5. PRENATAL VITAMINS [Concomitant]
     Indication: SUPPLEMENTATION THERAPY
     Route: 048
  6. TUMS [Concomitant]
     Route: 048
  7. PEPCID [Concomitant]
     Indication: GASTRITIS
     Route: 048
  8. FLONASE [Concomitant]
  9. TYLENOL [Concomitant]
  10. PHENERGAN [Concomitant]
     Indication: VOMITING
     Route: 048
  11. IRON [Concomitant]
     Route: 048
  12. PROTONIX [Concomitant]
     Indication: GASTRITIS
     Route: 048

REACTIONS (3)
  - Respiratory distress [Fatal]
  - Exposure during pregnancy [Unknown]
  - Bronchitis [None]
